FAERS Safety Report 6641802-0 (Version None)
Quarter: 2010Q1

REPORT INFORMATION
  Report Type: 
  Country: None (occurrence: None)
  Receive Date: 20100316
  Receipt Date: 20100301
  Transmission Date: 20100710
  Serious: Yes (Other)
  Sender: FDA-Public Use
  Company Number: AUR-APL-2010-00769

PATIENT
  Age: 74 Year
  Sex: Female

DRUGS (2)
  1. CITALOPRAM HYDROBROMIDE [Suspect]
     Dosage: 60 MG
  2. MORPHINE SULFATE [Suspect]
     Indication: SPINAL FRACTURE
     Dosage: 15MG, Q12H, ORAL
     Route: 048
     Dates: start: 20091201

REACTIONS (2)
  - DRUG INTERACTION [None]
  - HALLUCINATION [None]
